FAERS Safety Report 8323152-X (Version None)
Quarter: 2012Q2

REPORT INFORMATION
  Report Type: 
  Country: None (occurrence: None)
  Receive Date: 20120430
  Receipt Date: 20120419
  Transmission Date: 20120825
  Serious: Yes (Hospitalization, Disabling, Other)
  Sender: FDA-Public Use
  Company Number: US-ASTRAZENECA-2010SE55771

PATIENT
  Age: 63 Year
  Sex: Female
  Weight: 73.5 kg

DRUGS (14)
  1. NEXIUM [Suspect]
     Route: 048
     Dates: start: 20040729
  2. NEXIUM [Suspect]
     Route: 048
     Dates: start: 20040729
  3. NEXIUM [Suspect]
     Indication: GASTROOESOPHAGEAL REFLUX DISEASE
     Route: 048
     Dates: end: 20040728
  4. CRESTOR [Suspect]
     Route: 048
  5. BISMUTH SUBSALICYLATE [Concomitant]
  6. NEXIUM [Suspect]
     Indication: OESOPHAGEAL ULCER
     Route: 048
     Dates: end: 20040728
  7. NEXIUM [Suspect]
     Route: 048
     Dates: start: 20040729
  8. SINGULAIR [Concomitant]
  9. BEXTRA [Concomitant]
  10. TOPROL-XL [Concomitant]
     Route: 048
  11. UNSPECIFIED ANTIBIOTIC [Suspect]
     Route: 065
  12. CALCIUM CARBONATE [Concomitant]
  13. NEXIUM [Suspect]
     Indication: GASTRIC ULCER
     Route: 048
     Dates: end: 20040728
  14. ASACOL [Concomitant]

REACTIONS (12)
  - INCISIONAL HERNIA [None]
  - GASTROOESOPHAGEAL REFLUX DISEASE [None]
  - ASTHMA [None]
  - PROCEDURAL PAIN [None]
  - STOMATITIS [None]
  - INTENTIONAL DRUG MISUSE [None]
  - DEPRESSED LEVEL OF CONSCIOUSNESS [None]
  - BLINDNESS [None]
  - RASH [None]
  - ABDOMINAL PAIN UPPER [None]
  - ABDOMINAL HERNIA [None]
  - DRUG HYPERSENSITIVITY [None]
